FAERS Safety Report 25328898 (Version 1)
Quarter: 2025Q2

REPORT INFORMATION
  Report Type: Spontaneous
  Country: US (occurrence: US)
  Receive Date: 20250519
  Receipt Date: 20250519
  Transmission Date: 20250716
  Serious: Yes (Other)
  Sender: NOVO NORDISK
  Company Number: US-NOVOPROD-1428857

PATIENT
  Age: 75 Year
  Sex: Female

DRUGS (4)
  1. OZEMPIC [Suspect]
     Active Substance: SEMAGLUTIDE
     Dates: start: 202503
  2. OZEMPIC [Suspect]
     Active Substance: SEMAGLUTIDE
     Dates: start: 2023
  3. OZEMPIC [Suspect]
     Active Substance: SEMAGLUTIDE
     Indication: Type 2 diabetes mellitus
     Dates: start: 2023
  4. OZEMPIC [Suspect]
     Active Substance: SEMAGLUTIDE
     Dates: start: 202503

REACTIONS (8)
  - Anaesthetic complication [Recovering/Resolving]
  - Amnesia [Recovering/Resolving]
  - Confusional state [Recovering/Resolving]
  - Renal function test abnormal [Recovering/Resolving]
  - Lung disorder [Recovering/Resolving]
  - Oxygen saturation decreased [Recovering/Resolving]
  - Heart rate increased [Recovering/Resolving]
  - Off label use [Recovered/Resolved]

NARRATIVE: CASE EVENT DATE: 20230101
